FAERS Safety Report 7728289-1 (Version None)
Quarter: 2011Q3

REPORT INFORMATION
  Report Type: 
  Country: None (occurrence: None)
  Receive Date: 20110905
  Receipt Date: 20110829
  Transmission Date: 20111222
  Serious: Yes (Death, Other)
  Sender: FDA-Public Use
  Company Number: PHHY2011JP77344

PATIENT
  Sex: Male

DRUGS (13)
  1. BEVANTOLOL [Concomitant]
     Indication: HYPERTENSION
     Dosage: 100 MG, UNK
     Route: 048
     Dates: start: 20071005, end: 20071128
  2. ICROL [Concomitant]
     Dosage: 400 MG, UNK
     Route: 048
     Dates: start: 20070807, end: 20071010
  3. DIART [Concomitant]
     Indication: HYPERTENSION
     Dosage: 60 MG, UNK
     Route: 048
     Dates: start: 20080109
  4. VALSARTAN [Suspect]
     Dosage: 80 MG, DAILY
     Route: 048
     Dates: start: 20070919, end: 20090127
  5. CALBLOCK [Concomitant]
     Indication: HYPERTENSION
     Dosage: 16 MG, UNK
     Route: 048
     Dates: start: 20070914, end: 20081114
  6. ADALAT [Concomitant]
     Indication: HYPERTENSION
     Dosage: 40 MG, UNK
     Route: 048
     Dates: start: 20071017, end: 20080107
  7. LIMARMONE [Concomitant]
     Dosage: 15 MG, UNK
     Route: 048
     Dates: start: 20070807, end: 20080204
  8. ALPROSTADIL [Concomitant]
     Dosage: 10 UG, UNK
     Route: 042
     Dates: start: 20090105, end: 20090120
  9. SHAKUYAKUKANZOUTOU [Concomitant]
     Dosage: 7.5 G, UNK
     Route: 048
     Dates: start: 20070807, end: 20071010
  10. OLOPATADINE HCL [Concomitant]
     Dosage: 10 MG, UNK
     Route: 048
     Dates: start: 20070807, end: 20071010
  11. TENORMIN [Concomitant]
     Indication: HYPERTENSION
     Dosage: 50 MG, UNK
     Route: 048
     Dates: start: 20071010, end: 20080109
  12. CRESTOR [Concomitant]
     Dosage: 2.5 MG, UNK
     Route: 048
  13. ANPLAG [Concomitant]
     Dosage: 300 MG, UNK
     Dates: start: 20080204

REACTIONS (4)
  - BLOOD PRESSURE DECREASED [None]
  - DIPLOPIA [None]
  - ILIAC ARTERY OCCLUSION [None]
  - DEATH [None]
